FAERS Safety Report 23865994 (Version 1)
Quarter: 2024Q2

REPORT INFORMATION
  Report Type: Spontaneous
  Country: US (occurrence: US)
  Receive Date: 20240517
  Receipt Date: 20240517
  Transmission Date: 20240716
  Serious: Yes (Hospitalization)
  Sender: FDA-Public Use
  Company Number: US-CHEPLA-2024006069

PATIENT
  Sex: Female

DRUGS (1)
  1. CAPECITABINE [Suspect]
     Active Substance: CAPECITABINE
     Indication: Gastric cancer
     Dosage: BID, AFTER MEALS ON DAYS 1 TO 14 OF 21 DAY CYCLE. ONGOING?DAILY DOSE: 2000 MILLIGRAM
     Route: 048
     Dates: start: 202401

REACTIONS (1)
  - Metastases to central nervous system [Unknown]
